FAERS Safety Report 12118521 (Version 1)
Quarter: 2016Q1

REPORT INFORMATION
  Report Type: Spontaneous
  Country: US (occurrence: None)
  Receive Date: 20160224
  Receipt Date: 20160224
  Transmission Date: 20160526
  Serious: Yes (Other)
  Sender: FDA-Public Use
  Company Number: None

PATIENT
  Age: 81 Year
  Sex: Female
  Weight: 49.9 kg

DRUGS (4)
  1. CALCIUM [Concomitant]
     Active Substance: CALCIUM
  2. STOOL SOFTNER [Concomitant]
     Active Substance: DOCUSATE SODIUM
  3. KETOCONAZOLE. [Suspect]
     Active Substance: KETOCONAZOLE
     Indication: RASH
     Dosage: 2%, 2 TIMES A DAY FOR 1 MONTH, SKIN
     Dates: start: 20151024, end: 20151113
  4. TRAVATON Z [Concomitant]

REACTIONS (2)
  - Eyelid oedema [None]
  - Malaise [None]

NARRATIVE: CASE EVENT DATE: 20151113
